FAERS Safety Report 9513986 (Version 1)
Quarter: 2013Q3

REPORT INFORMATION
  Report Type: Spontaneous
  Country: GB (occurrence: GB)
  Receive Date: 20130910
  Receipt Date: 20130910
  Transmission Date: 20140515
  Serious: Yes (Other)
  Sender: FDA-Public Use
  Company Number: GB-MYLANLABS-2013S1019444

PATIENT
  Age: 27 Year
  Sex: Male

DRUGS (1)
  1. GABAPENTIN [Suspect]
     Indication: EPILEPSY
     Route: 048
     Dates: start: 200911

REACTIONS (9)
  - Depression [Unknown]
  - Gingival pain [Unknown]
  - Headache [Unknown]
  - Medication error [Unknown]
  - Pain [Unknown]
  - Tinnitus [Unknown]
  - Insomnia [Unknown]
  - Oropharyngeal pain [Unknown]
  - Paraesthesia [Unknown]
